FAERS Safety Report 16681683 (Version 12)
Quarter: 2021Q1

REPORT INFORMATION
  Report Type: Other
  Country: DE (occurrence: DE)
  Receive Date: 20190808
  Receipt Date: 20210206
  Transmission Date: 20210419
  Serious: Yes (Hospitalization, Other)
  Sender: FDA-Public Use
  Company Number: DE-ROCHE-2242179

PATIENT
  Age: 31 Year
  Sex: Female
  Weight: 70 kg

DRUGS (12)
  1. PARACETAMOL [Concomitant]
     Active Substance: ACETAMINOPHEN
  2. OCREVUS [Suspect]
     Active Substance: OCRELIZUMAB
     Route: 042
     Dates: start: 20180321, end: 20180321
  3. IBUPROFEN. [Concomitant]
     Active Substance: IBUPROFEN
  4. CIPRALEX [Concomitant]
     Active Substance: ESCITALOPRAM OXALATE
     Indication: DEPRESSION
     Route: 048
     Dates: start: 2017
  5. OCREVUS [Suspect]
     Active Substance: OCRELIZUMAB
     Indication: RELAPSING-REMITTING MULTIPLE SCLEROSIS
     Route: 042
     Dates: start: 20180307, end: 20180307
  6. OCREVUS [Suspect]
     Active Substance: OCRELIZUMAB
     Dosage: 27/MAR/2019, 23/SEP/2019, 09/APR/2020 AND 03/NOV/2020 RECEIVED SAME SUBSEQUENT DOSE
     Route: 042
     Dates: start: 20181020
  7. PREDNISOLONE. [Concomitant]
     Active Substance: PREDNISOLONE
  8. INCENSE [Concomitant]
  9. ARLEVERT [Concomitant]
     Active Substance: CINNARIZINE\DIMENHYDRINATE
     Indication: DIZZINESS
     Dosage: 20/ 40 MG
     Dates: start: 2015
  10. FENISTIL [Concomitant]
     Active Substance: DIMETHINDENE
  11. CITALOPRAM [Concomitant]
     Active Substance: CITALOPRAM HYDROBROMIDE
  12. RANITIDINE. [Concomitant]
     Active Substance: RANITIDINE

REACTIONS (18)
  - Hypoaesthesia [Recovering/Resolving]
  - Frequent bowel movements [Unknown]
  - Weight decreased [Unknown]
  - Lethargy [Recovered/Resolved]
  - Muscular weakness [Recovered/Resolved]
  - Trigeminal neuralgia [Recovered/Resolved]
  - Diarrhoea [Unknown]
  - Fatigue [Recovered/Resolved]
  - Fatigue [Recovered/Resolved]
  - Depression [Unknown]
  - Multiple sclerosis relapse [Unknown]
  - Somnolence [Unknown]
  - Diarrhoea [Recovering/Resolving]
  - Paraesthesia [Recovering/Resolving]
  - Fatigue [Recovered/Resolved]
  - Nasopharyngitis [Recovered/Resolved]
  - Pruritus [Recovered/Resolved]
  - Bladder disorder [Recovering/Resolving]

NARRATIVE: CASE EVENT DATE: 20180308
